FAERS Safety Report 4435116-7 (Version None)
Quarter: 2004Q3

REPORT INFORMATION
  Report Type: 
  Country: None (occurrence: None)
  Receive Date: 20040826
  Receipt Date: 20040826
  Transmission Date: 20050211
  Serious: Yes (Other)
  Sender: FDA-Public Use
  Company Number: None

PATIENT
  Age: 73 Year
  Sex: Male

DRUGS (1)
  1. LEVAQUIN [Suspect]
     Indication: RESPIRATORY TRACT CONGESTION
     Dosage: INTRAVENOUS
     Route: 042
     Dates: start: 20040512, end: 20040513

REACTIONS (1)
  - INJECTION SITE ERYTHEMA [None]
